FAERS Safety Report 19002685 (Version 1)
Quarter: 2021Q1

REPORT INFORMATION
  Report Type: Spontaneous
  Country: US (occurrence: US)
  Receive Date: 20210312
  Receipt Date: 20210312
  Transmission Date: 20210420
  Serious: No
  Sender: FDA-Public Use
  Company Number: US-ALLERGAN-2044371US

PATIENT
  Sex: Female

DRUGS (1)
  1. ESTRACE [Suspect]
     Active Substance: ESTRADIOL
     Indication: VAGINAL DISORDER
     Dosage: 1 G
     Route: 067
     Dates: start: 2020, end: 202011

REACTIONS (3)
  - Off label use [Unknown]
  - Therapy interrupted [Unknown]
  - Vaginal discharge [Recovered/Resolved]
